FAERS Safety Report 21217091 (Version 1)
Quarter: 2022Q3

REPORT INFORMATION
  Report Type: Spontaneous
  Country: US (occurrence: None)
  Receive Date: 20220816
  Receipt Date: 20220816
  Transmission Date: 20221027
  Serious: No
  Sender: FDA-Public Use
  Company Number: US-ROCHE-3065935

PATIENT
  Sex: Female
  Weight: 59.020 kg

DRUGS (1)
  1. ALECENSA [Suspect]
     Active Substance: ALECTINIB HYDROCHLORIDE
     Indication: Lung neoplasm malignant
     Dosage: TAKES 4 CAPSULES TWICE A DAY
     Route: 048

REACTIONS (2)
  - Chromaturia [Not Recovered/Not Resolved]
  - Peripheral swelling [Unknown]
